FAERS Safety Report 6568953-3 (Version None)
Quarter: 2010Q1

REPORT INFORMATION
  Report Type: 
  Country: None (occurrence: None)
  Receive Date: 20100203
  Receipt Date: 20100120
  Transmission Date: 20100710
  Serious: Yes (Death)
  Sender: FDA-Public Use
  Company Number: GB-MYLANLABS-2009S1000307

PATIENT
  Sex: Male
  Weight: 1.15 kg

DRUGS (1)
  1. METFORMIN HCL [Suspect]
     Indication: GESTATIONAL DIABETES
     Route: 064
     Dates: start: 20081008, end: 20081024

REACTIONS (2)
  - DRUG EXPOSURE DURING PREGNANCY [None]
  - INTRA-UTERINE DEATH [None]
